FAERS Safety Report 6561323-3 (Version None)
Quarter: 2010Q1

REPORT INFORMATION
  Report Type: 
  Country: None (occurrence: None)
  Receive Date: 20100130
  Receipt Date: 20091015
  Transmission Date: 20100710
  Serious: No
  Sender: FDA-Public Use
  Company Number: US-ABBOTT-09P-163-0603671-00

PATIENT
  Sex: Female
  Weight: 72.64 kg

DRUGS (5)
  1. HUMIRA [Suspect]
     Indication: PSORIATIC ARTHROPATHY
     Dosage: SUMMERTIME
     Route: 058
     Dates: end: 20090901
  2. HUMIRA [Suspect]
     Route: 058
  3. METHOTREXATE [Concomitant]
     Indication: PSORIASIS
     Route: 048
  4. METHOTREXATE [Concomitant]
     Indication: PSORIATIC ARTHROPATHY
  5. BIRTH CONTROL TABLETS [Concomitant]
     Indication: CONTRACEPTION
     Route: 048

REACTIONS (3)
  - INFLUENZA [None]
  - PSORIASIS [None]
  - PSORIATIC ARTHROPATHY [None]
